FAERS Safety Report 8160595-1 (Version None)
Quarter: 2012Q1

REPORT INFORMATION
  Report Type: 
  Country: None (occurrence: None)
  Receive Date: 20120223
  Receipt Date: 20120221
  Transmission Date: 20120608
  Serious: Yes (Life-Threatening, Hospitalization, Other)
  Sender: FDA-Public Use
  Company Number: CA-B.I. PHARMACEUTICALS,INC./RIDGEFIELD-2012-CN-00377CN

PATIENT
  Age: 76 Year
  Sex: Male
  Weight: 81.65 kg

DRUGS (6)
  1. PRADAXA [Suspect]
     Dosage: 300 MG
     Route: 048
  2. BISOPROLOL FUMARATE [Concomitant]
     Route: 048
  3. AMIODARONE HCL [Concomitant]
     Route: 048
  4. METFORMIN HCL [Concomitant]
     Route: 048
  5. PRADAXA [Suspect]
     Dosage: 300 MG
     Route: 048
  6. SIMVASTATIN [Concomitant]
     Route: 048

REACTIONS (6)
  - RENAL FAILURE ACUTE [None]
  - SEPSIS [None]
  - MULTI-ORGAN FAILURE [None]
  - HEPATITIS ACUTE [None]
  - COAGULOPATHY [None]
  - PERICARDIAL EFFUSION [None]
